FAERS Safety Report 4533723-4 (Version None)
Quarter: 2004Q4

REPORT INFORMATION
  Report Type: 
  Country: None (occurrence: None)
  Receive Date: 20041221
  Receipt Date: 20041203
  Transmission Date: 20050328
  Serious: Yes (Death)
  Sender: FDA-Public Use
  Company Number: ZA-GLAXOSMITHKLINE-B0361120A

PATIENT
  Age: 59 Year
  Sex: Female

DRUGS (1)
  1. ZYBAN [Suspect]
     Indication: SMOKING CESSATION THERAPY
     Dosage: 150MG TWICE PER DAY
     Route: 065

REACTIONS (4)
  - HYPERTENSIVE NEPHROPATHY [None]
  - NEPHROPATHY [None]
  - RENAL AMYLOIDOSIS [None]
  - RENAL FAILURE [None]
